FAERS Safety Report 6869210-8 (Version None)
Quarter: 2010Q3

REPORT INFORMATION
  Report Type: 
  Country: None (occurrence: None)
  Receive Date: 20100722
  Receipt Date: 20080801
  Transmission Date: 20110219
  Serious: No
  Sender: FDA-Public Use
  Company Number: US-PFIZER INC-2008054179

PATIENT
  Sex: Female
  Weight: 70.454 kg

DRUGS (1)
  1. CHANTIX [Suspect]
     Indication: SMOKING CESSATION THERAPY
     Dates: start: 20080610, end: 20080616

REACTIONS (4)
  - CHEST PAIN [None]
  - NAUSEA [None]
  - OEDEMA PERIPHERAL [None]
  - PANIC ATTACK [None]
